FAERS Safety Report 16254788 (Version 1)
Quarter: 2019Q2

REPORT INFORMATION
  Report Type: Spontaneous
  Country: IT (occurrence: IT)
  Receive Date: 20190430
  Receipt Date: 20190430
  Transmission Date: 20190711
  Serious: Yes (Death)
  Sender: FDA-Public Use
  Company Number: IT-TEVA-2019-IT-1042301

PATIENT
  Age: 66 Year
  Sex: Female
  Weight: 53 kg

DRUGS (5)
  1. CISPLATINO TEVA ITALIA [Suspect]
     Active Substance: CISPLATIN
     Indication: ADRENAL GLAND CANCER METASTATIC
     Route: 042
     Dates: start: 20190322
  2. ETOPOSIDE TEVA [Suspect]
     Active Substance: ETOPOSIDE
     Indication: ADRENAL GLAND CANCER METASTATIC
     Route: 042
     Dates: start: 20190322
  3. MITOTANE [Concomitant]
     Active Substance: MITOTANE
  4. DOXORUBICINA TEVA [Suspect]
     Active Substance: DOXORUBICIN
     Indication: ADRENAL GLAND CANCER METASTATIC
     Route: 042
     Dates: start: 20190322
  5. CORTONE ACETATO 25 MG COMPRESSE 20 COMPRESSE [Concomitant]
     Route: 048

REACTIONS (6)
  - Febrile neutropenia [Fatal]
  - Death [Fatal]
  - Hypovolaemic shock [Fatal]
  - Thrombocytopenia [Fatal]
  - Haemoptysis [Fatal]
  - Sepsis [Fatal]

NARRATIVE: CASE EVENT DATE: 20190401
